FAERS Safety Report 9823015 (Version 2)
Quarter: 2014Q1

REPORT INFORMATION
  Report Type: Spontaneous
  Country: BR (occurrence: US)
  Receive Date: 20140116
  Receipt Date: 20140120
  Transmission Date: 20141002
  Serious: No
  Sender: FDA-Public Use
  Company Number: BR-009507513-1401USA005464

PATIENT
  Age: 42 Year
  Sex: Male

DRUGS (1)
  1. SAFLUTAN [Suspect]
     Indication: GLAUCOMA
     Dosage: 1 DROP IN EACH EYE PER NIGHT
     Route: 047
     Dates: start: 2012

REACTIONS (3)
  - Abnormal sensation in eye [Recovering/Resolving]
  - Ocular hyperaemia [Recovering/Resolving]
  - Incorrect product storage [Unknown]
